FAERS Safety Report 5868924-6 (Version None)
Quarter: 2008Q3

REPORT INFORMATION
  Report Type: 
  Country: None (occurrence: None)
  Receive Date: 20080903
  Receipt Date: 20080822
  Transmission Date: 20090109
  Serious: Yes (Death)
  Sender: FDA-Public Use
  Company Number: GB-MERCK-0808GBR00101

PATIENT
  Age: 50 Year
  Sex: Male

DRUGS (6)
  1. DECADRON SRC [Suspect]
     Indication: LYMPHOMA
     Route: 048
  2. CHLORAMBUCIL [Concomitant]
     Route: 065
  3. FLUDARABINE PHOSPHATE [Concomitant]
     Route: 065
  4. RITUXIMAB [Concomitant]
     Route: 065
  5. CISPLATIN AND CYTARABINE AND ETOPOSIDE AND METHYLPREDNISOLONE [Concomitant]
     Route: 065
  6. [THERAPY UNSPECIFIED] [Concomitant]
     Route: 065

REACTIONS (2)
  - RECURRENCE OF NEUROMUSCULAR BLOCKADE [None]
  - STAPHYLOCOCCAL INFECTION [None]
